FAERS Safety Report 5241155-9 (Version None)
Quarter: 2007Q1

REPORT INFORMATION
  Report Type: 
  Country: None (occurrence: None)
  Receive Date: 20070220
  Receipt Date: 20070212
  Transmission Date: 20070707
  Serious: Yes (Hospitalization, Other)
  Sender: FDA-Public Use
  Company Number: FRWYE132612JAN07

PATIENT
  Sex: Male
  Weight: 90 kg

DRUGS (5)
  1. EFFEXOR XR [Suspect]
     Indication: DEPRESSION
     Dosage: 150 MG TOTAL DAILY
     Route: 048
     Dates: start: 20060101, end: 20060601
  2. EFFEXOR XR [Suspect]
     Dosage: 225 MG TOTAL DAILY
     Route: 048
     Dates: start: 20060602
  3. TEMESTA [Concomitant]
     Indication: ANXIETY
     Dosage: 3 MG TOTAL DAILY
     Route: 048
     Dates: start: 20030101
  4. LEPTICUR [Suspect]
     Dosage: 5 MG; FREQUENCY UNSPEC.
     Route: 048
     Dates: start: 20030101, end: 20070104
  5. PIPORTIL [Concomitant]
     Indication: INSOMNIA
     Route: 048
     Dates: start: 20000101

REACTIONS (8)
  - ATONIC URINARY BLADDER [None]
  - CONDITION AGGRAVATED [None]
  - DYSURIA [None]
  - EPILEPSY [None]
  - HYDRONEPHROSIS [None]
  - HYPERTENSION [None]
  - URINARY INCONTINENCE [None]
  - URINARY RETENTION [None]
